FAERS Safety Report 7381368-3 (Version None)
Quarter: 2011Q1

REPORT INFORMATION
  Report Type: 
  Country: None (occurrence: None)
  Receive Date: 20110321
  Receipt Date: 20110308
  Transmission Date: 20110831
  Serious: Yes (Other)
  Sender: FDA-Public Use
  Company Number: 1000019124

PATIENT
  Sex: Female

DRUGS (1)
  1. ESCITALOPRAM [Suspect]

REACTIONS (4)
  - SYSTEMIC LUPUS ERYTHEMATOSUS [None]
  - DRUG INEFFECTIVE [None]
  - AURICULAR PERICHONDRITIS [None]
  - PARAESTHESIA [None]
